FAERS Safety Report 10408877 (Version 1)
Quarter: 2014Q3

REPORT INFORMATION
  Report Type: Spontaneous
  Country: US (occurrence: None)
  Receive Date: 20140825
  Receipt Date: 20140825
  Transmission Date: 20150326
  Serious: No
  Sender: FDA-Public Use
  Company Number: None

PATIENT
  Age: 62 Year
  Sex: Female
  Weight: 85.28 kg

DRUGS (2)
  1. ANASTROZOLE 1 MG [Suspect]
     Active Substance: ANASTROZOLE
     Indication: BREAST CANCER
     Dosage: 1 TAB DAILY ONCE DAILY TAKEN BY MOUTH
     Route: 048
  2. ANASTROZOLE 1 MG [Suspect]
     Active Substance: ANASTROZOLE
     Indication: POSTOPERATIVE CARE
     Dosage: 1 TAB DAILY ONCE DAILY TAKEN BY MOUTH
     Route: 048

REACTIONS (1)
  - Weight increased [None]

NARRATIVE: CASE EVENT DATE: 20130215
